FAERS Safety Report 11672778 (Version 2)
Quarter: 2017Q1

REPORT INFORMATION
  Report Type: Spontaneous
  Country: TR (occurrence: TR)
  Receive Date: 20151028
  Receipt Date: 20170218
  Transmission Date: 20170428
  Serious: Yes (Life-Threatening, Hospitalization)
  Sender: FDA-Public Use
  Company Number: TR-SUN PHARMACEUTICAL INDUSTRIES LTD-2015R1-104964

PATIENT
  Age: 19 Year
  Sex: Female

DRUGS (1)
  1. BUPROPION. [Suspect]
     Active Substance: BUPROPION
     Indication: PRODUCT USED FOR UNKNOWN INDICATION
     Dosage: 15-20 TABLETS, SINGLE
     Route: 048

REACTIONS (4)
  - Intentional overdose [Recovered/Resolved]
  - Status epilepticus [Recovered/Resolved]
  - Cardiac arrest [Recovered/Resolved]
  - Suicide attempt [Unknown]
